FAERS Safety Report 5154941-0 (Version None)
Quarter: 2006Q4

REPORT INFORMATION
  Report Type: 
  Country: None (occurrence: None)
  Receive Date: 20061121
  Receipt Date: 20060509
  Transmission Date: 20070319
  Serious: Yes (Hospitalization)
  Sender: FDA-Public Use
  Company Number: PHRM2006FR01542

PATIENT
  Age: 25 Year
  Sex: Male
  Weight: 85 kg

DRUGS (7)
  1. LEPONEX [Suspect]
     Indication: SCHIZOPHRENIA
     Dosage: 200 MG, BID
     Route: 048
     Dates: start: 20030101
  2. XANAX [Concomitant]
     Indication: PSYCHOTIC DISORDER
     Dosage: 0.25 MG, QD
     Route: 048
     Dates: start: 20040101
  3. PENTOTHAL [Concomitant]
     Indication: ANAESTHESIA
  4. BARBITURATES [Concomitant]
     Indication: ANAESTHESIA
  5. ATRACURIUM BESYLATE [Concomitant]
     Indication: ANAESTHESIA
  6. DESFLURANE [Suspect]
     Indication: ANAESTHESIA
  7. SUFENTANIL CITRATE [Concomitant]
     Indication: ANAESTHESIA

REACTIONS (5)
  - DELAYED RECOVERY FROM ANAESTHESIA [None]
  - DRUG INTERACTION [None]
  - FALL [None]
  - FEMORAL NECK FRACTURE [None]
  - SURGERY [None]
